FAERS Safety Report 17453008 (Version 1)
Quarter: 2020Q1

REPORT INFORMATION
  Report Type: Spontaneous
  Country: CN (occurrence: CL)
  Receive Date: 20200224
  Receipt Date: 20200224
  Transmission Date: 20200409
  Serious: Yes (Life-Threatening, Hospitalization, Other)
  Sender: FDA-Public Use
  Company Number: CN-ASTRAZENECA-2020SE27345

PATIENT
  Age: 16306 Day
  Sex: Male
  Weight: 70 kg

DRUGS (5)
  1. GLIQUIDONE [Suspect]
     Active Substance: GLIQUIDONE
     Indication: DIABETES MELLITUS
     Dosage: 0.3 DAYS
     Route: 048
     Dates: start: 20200213, end: 20200215
  2. METFORMIN HYDROCHLORIDE. [Suspect]
     Active Substance: METFORMIN HYDROCHLORIDE
     Indication: DIABETES MELLITUS
     Dosage: 0.5 DAYS
     Route: 048
     Dates: start: 20200213, end: 20200215
  3. FORXIGA [Suspect]
     Active Substance: DAPAGLIFLOZIN
     Indication: DIABETES MELLITUS
     Route: 048
     Dates: start: 20200213, end: 20200215
  4. ACARBOSE. [Suspect]
     Active Substance: ACARBOSE
     Indication: DIABETES MELLITUS
     Dosage: 0.3 DAYS
     Route: 048
     Dates: start: 20200213, end: 20200215
  5. PROTAMINE [Suspect]
     Active Substance: PROTAMINE
     Indication: DIABETES MELLITUS
     Dosage: RECOMBINANT HUMAN INSULIN MIXED INJECTION (30 / 70), 50 UNITS, 0.5 DAYS
     Route: 058
     Dates: start: 20200213, end: 20200215

REACTIONS (4)
  - Speech disorder [Recovering/Resolving]
  - Hypoglycaemia [Recovering/Resolving]
  - Hyperhidrosis [Recovering/Resolving]
  - Altered state of consciousness [Recovering/Resolving]

NARRATIVE: CASE EVENT DATE: 20200215
